APPROVED DRUG PRODUCT: CEFOTAN IN PLASTIC CONTAINER
Active Ingredient: CEFOTETAN DISODIUM
Strength: EQ 20MG BASE/ML
Dosage Form/Route: INJECTABLE;INJECTION
Application: N050694 | Product #002
Applicant: PAI HOLDINGS LLC DBA PHARMACEUTICAL ASSOCIATES INC
Approved: Jul 30, 1993 | RLD: No | RS: No | Type: DISCN